FAERS Safety Report 5286424-1 (Version None)
Quarter: 2007Q1

REPORT INFORMATION
  Report Type: 
  Country: None (occurrence: None)
  Receive Date: 20070116
  Receipt Date: 20061026
  Transmission Date: 20070707
  Serious: No
  Sender: FDA-Public Use
  Company Number: 2006SP003837

PATIENT
  Age: 46 Year
  Sex: Female
  Weight: 52.1637 kg

DRUGS (2)
  1. LUNESTA [Suspect]
     Indication: INSOMNIA
     Dosage: 2 MG, PRN, ORAL
     Route: 048
     Dates: start: 20061001
  2. ATORVASTATIN CALCIUM [Concomitant]

REACTIONS (1)
  - DYSGEUSIA [None]
